FAERS Safety Report 15582504 (Version 1)
Quarter: 2018Q4

REPORT INFORMATION
  Report Type: Spontaneous
  Country: US (occurrence: US)
  Receive Date: 20181104
  Receipt Date: 20181104
  Transmission Date: 20190205
  Serious: Yes (Disabling)
  Sender: FDA-Public Use
  Company Number: None

PATIENT
  Age: 58 Year
  Sex: Female
  Weight: 67.5 kg

DRUGS (9)
  1. FOSAMAX [Suspect]
     Active Substance: ALENDRONATE SODIUM
     Indication: OSTEOPOROSIS
     Dosage: ?          QUANTITY:1 TABLET(S);?
     Route: 048
  2. TRIAMTERENE. [Concomitant]
     Active Substance: TRIAMTERENE
  3. FAMOTIDINE. [Concomitant]
     Active Substance: FAMOTIDINE
  4. MULTI VITAMIN [Concomitant]
     Active Substance: VITAMINS
  5. VATIM D [Concomitant]
  6. ESSENTIAL OILS. [Concomitant]
     Active Substance: ESSENTIAL OILS
  7. FLUTICASONE PROPIONATE. [Concomitant]
     Active Substance: FLUTICASONE PROPIONATE
  8. CONDROITON + GLUCOSAMINE [Concomitant]
  9. CALCIUM [Concomitant]
     Active Substance: CALCIUM

REACTIONS (8)
  - Insomnia [None]
  - Fatigue [None]
  - Mobility decreased [None]
  - Major depression [None]
  - Pain [None]
  - Bruxism [None]
  - Flatulence [None]
  - Arthralgia [None]

NARRATIVE: CASE EVENT DATE: 20181012
